FAERS Safety Report 5662012-X (Version None)
Quarter: 2008Q1

REPORT INFORMATION
  Report Type: 
  Country: None (occurrence: None)
  Receive Date: 20080205
  Receipt Date: 20070518
  Transmission Date: 20080703
  Serious: Yes (Other)
  Sender: FDA-Public Use
  Company Number: MEDI-0005169

PATIENT
  Age: 63 Year
  Sex: Female
  Weight: 72.5755 kg

DRUGS (3)
  1. ETHYOL [Suspect]
     Indication: TONSIL CANCER
     Dosage: 500 MG, 5 IN 5 D, SUBCUTANEOUS
     Route: 058
     Dates: start: 20061108, end: 20061121
  2. COMPAZINE [Concomitant]
  3. BENADRYL [Concomitant]

REACTIONS (10)
  - INJECTION SITE DISCHARGE [None]
  - INJECTION SITE RASH [None]
  - INJECTION SITE VESICLES [None]
  - NIKOLSKY'S SIGN [None]
  - RASH MACULAR [None]
  - RASH PAPULAR [None]
  - RASH PRURITIC [None]
  - SKIN BURNING SENSATION [None]
  - SKIN INJURY [None]
  - TOXIC EPIDERMAL NECROLYSIS [None]
